FAERS Safety Report 10419950 (Version 1)
Quarter: 2014Q3

REPORT INFORMATION
  Report Type: Spontaneous
  Country: US (occurrence: None)
  Receive Date: 20140828
  Receipt Date: 20140828
  Transmission Date: 20150326
  Serious: Yes (Hospitalization, Other)
  Sender: FDA-Public Use
  Company Number: 2014-US-010476

PATIENT
  Sex: Female
  Weight: 50 kg

DRUGS (5)
  1. KADIAN [Suspect]
     Active Substance: MORPHINE SULFATE
     Indication: PRODUCT USED FOR UNKNOWN INDICATION
     Route: 048
  2. ALBUTEROL (SALBUTAMOL SULFATE) [Concomitant]
  3. XYREM [Suspect]
     Active Substance: SODIUM OXYBATE
     Indication: PAIN
     Route: 048
  4. NUVIGIL [Concomitant]
     Active Substance: ARMODAFINIL
  5. ZOFRAN (ONDANSETRON HYDROCHLORIDE) [Concomitant]

REACTIONS (3)
  - Intentional product misuse [None]
  - Off label use [None]
  - Mental status changes [None]

NARRATIVE: CASE EVENT DATE: 20140817
